FAERS Safety Report 6915479-0 (Version None)
Quarter: 2010Q3

REPORT INFORMATION
  Report Type: 
  Country: None (occurrence: None)
  Receive Date: 20100809
  Receipt Date: 20100730
  Transmission Date: 20110219
  Serious: Yes (Life-Threatening, Hospitalization, Other)
  Sender: FDA-Public Use
  Company Number: JP-ABBOTT-10P-087-0655900-00

PATIENT
  Age: 69 Year
  Sex: Male
  Weight: 60.3 kg

DRUGS (9)
  1. KLARICID [Suspect]
     Indication: NASOPHARYNGITIS
     Route: 048
     Dates: start: 20050707
  2. BEPRIDIL [Suspect]
     Indication: ATRIAL FIBRILLATION
     Dates: start: 20000324, end: 20050707
  3. DIGOXIN [Concomitant]
     Indication: PRODUCT USED FOR UNKNOWN INDICATION
  4. AMLODIPINE BESYLATE [Concomitant]
     Indication: HYPERTENSION
     Route: 048
  5. WARFARIN SODIUM [Concomitant]
     Indication: ATRIAL FIBRILLATION
     Route: 048
  6. PARAMIDIN [Concomitant]
     Indication: ATRIAL FIBRILLATION
     Route: 048
  7. LENDORMIN D [Concomitant]
     Indication: INSOMNIA
     Route: 048
  8. PENFILL N [Concomitant]
     Indication: DIABETES MELLITUS
     Route: 058
  9. BISOLVON [Concomitant]
     Indication: NASOPHARYNGITIS
     Route: 048

REACTIONS (2)
  - SYNCOPE [None]
  - TORSADE DE POINTES [None]
